FAERS Safety Report 11770437 (Version 2)
Quarter: 2015Q4

REPORT INFORMATION
  Report Type: Spontaneous
  Country: US (occurrence: US)
  Receive Date: 20151123
  Receipt Date: 20151123
  Transmission Date: 20160304
  Serious: No
  Sender: FDA-Public Use
  Company Number: US-PERRIGO-15US007187

PATIENT
  Age: 83 Year
  Sex: Female
  Weight: 63.49 kg

DRUGS (8)
  1. AMLODIPINE [Concomitant]
     Active Substance: AMLODIPINE BESYLATE
     Indication: HYPERTENSION
     Dosage: 5 MG
     Route: 065
  2. POLYETHYLENE GLYCOL 3350. [Suspect]
     Active Substance: POLYETHYLENE GLYCOL 3350
     Dosage: 1/2 TEASPOON, QD
     Route: 048
     Dates: start: 20150708
  3. BUPROPION. [Concomitant]
     Active Substance: BUPROPION
     Indication: DEPRESSION
     Dosage: 100 MG
     Route: 065
  4. CITALOPRAM [Concomitant]
     Active Substance: CITALOPRAM HYDROBROMIDE
     Indication: DEPRESSION
     Dosage: 20 MG
     Route: 065
  5. LITHIUM. [Concomitant]
     Active Substance: LITHIUM
     Indication: DEPRESSION
     Dosage: 150 MG
     Route: 065
  6. POLYETHYLENE GLYCOL 3350. [Suspect]
     Active Substance: POLYETHYLENE GLYCOL 3350
     Indication: CONSTIPATION
     Dosage: 17 G, QD
     Route: 048
     Dates: start: 201507, end: 20150707
  7. LEVOTHYROXINE. [Concomitant]
     Active Substance: LEVOTHYROXINE
     Indication: HYPOTHYROIDISM
     Dosage: 7.5 MCG
     Route: 065
  8. LISINOPRIL. [Concomitant]
     Active Substance: LISINOPRIL
     Indication: HYPERTENSION
     Dosage: 20 MG
     Route: 065
     Dates: start: 201505

REACTIONS (3)
  - Underdose [Unknown]
  - Drug effect decreased [Unknown]
  - Faeces soft [Recovered/Resolved]

NARRATIVE: CASE EVENT DATE: 20150707
